FAERS Safety Report 4437229-2 (Version None)
Quarter: 2004Q3

REPORT INFORMATION
  Report Type: 
  Country: None (occurrence: None)
  Receive Date: 20040726
  Receipt Date: 20040302
  Transmission Date: 20050211
  Serious: No
  Sender: FDA-Public Use
  Company Number: USA040360771

PATIENT
  Age: 77 Year
  Sex: Female
  Weight: 49 kg

DRUGS (5)
  1. FORTEO [Suspect]
     Indication: OSTEOPOROSIS
     Dates: start: 20040217
  2. METHOTREXATE [Concomitant]
  3. CELEBREX [Concomitant]
  4. PREDNISONE [Concomitant]
  5. OXYCONTIN [Concomitant]

REACTIONS (3)
  - DEHYDRATION [None]
  - VIRAL INFECTION [None]
  - VOMITING [None]
